FAERS Safety Report 16077656 (Version 2)
Quarter: 2019Q2

REPORT INFORMATION
  Report Type: Report from Study
  Country: US (occurrence: US)
  Receive Date: 20190315
  Receipt Date: 20190517
  Transmission Date: 20190711
  Serious: Yes (Disabling, Other)
  Sender: FDA-Public Use
  Company Number: US-REGENERON PHARMACEUTICALS, INC.-2019-22044

PATIENT

DRUGS (3)
  1. METFORMIN [Concomitant]
     Active Substance: METFORMIN HYDROCHLORIDE
     Indication: PRODUCT USED FOR UNKNOWN INDICATION
  2. EYLEA [Suspect]
     Active Substance: AFLIBERCEPT
     Indication: DIABETIC RETINOPATHY
     Dosage: 2 MG/0.05 ML, MONTHLY, OD
     Dates: start: 20161118, end: 20170608
  3. EYLEA [Suspect]
     Active Substance: AFLIBERCEPT
     Indication: DIABETIC RETINAL OEDEMA
     Dosage: 2 MG/0.05 ML, MONTHLY, BOTH EYES, ALTERNATING EYE EVERY 2 WEEKS, LAST PRIOR EVENT
     Dates: start: 2018, end: 2018

REACTIONS (5)
  - Wrong technique in product usage process [Unknown]
  - Blindness transient [Recovered/Resolved]
  - Cataract [Unknown]
  - Eye haemorrhage [Recovered/Resolved]
  - Refusal of treatment by patient [Unknown]

NARRATIVE: CASE EVENT DATE: 2018
